FAERS Safety Report 25725565 (Version 1)
Quarter: 2025Q3

REPORT INFORMATION
  Report Type: Spontaneous
  Country: US (occurrence: US)
  Receive Date: 20250826
  Receipt Date: 20250826
  Transmission Date: 20251020
  Serious: Yes (Other)
  Sender: COOPERSURGICAL
  Company Number: US-COOPERSURGICAL, INC.-2025CPS006124

PATIENT
  Age: 27 Year
  Sex: Female
  Weight: 62.585 kg

DRUGS (1)
  1. PARAGARD T 380A [Suspect]
     Active Substance: COPPER
     Indication: Contraception
     Dates: start: 20171001

REACTIONS (12)
  - Female sterilisation [Recovered/Resolved]
  - Salpingitis [Recovered/Resolved]
  - Device breakage [Recovered/Resolved]
  - Foreign body in urogenital tract [Recovered/Resolved]
  - Complication of device removal [Recovered/Resolved]
  - Embedded device [Recovered/Resolved]
  - Procedural haemorrhage [Recovered/Resolved]
  - Adenomyosis [Unknown]
  - Anxiety [Not Recovered/Not Resolved]
  - Emotional distress [Unknown]
  - Heavy menstrual bleeding [Recovered/Resolved]
  - Pelvic pain [Recovered/Resolved]

NARRATIVE: CASE EVENT DATE: 20171001
